FAERS Safety Report 7368025-4 (Version None)
Quarter: 2011Q1

REPORT INFORMATION
  Report Type: 
  Country: None (occurrence: None)
  Receive Date: 20110323
  Receipt Date: 20110318
  Transmission Date: 20110831
  Serious: Yes (Other)
  Sender: FDA-Public Use
  Company Number: US-BAYER-2011-024567

PATIENT
  Age: 71 Year
  Sex: Female

DRUGS (1)
  1. BETAPACE [Suspect]
     Indication: ATRIAL FIBRILLATION
     Dosage: 120 MG, BID
     Route: 048
     Dates: start: 20110101

REACTIONS (3)
  - NERVOUSNESS [None]
  - BLOOD PRESSURE INCREASED [None]
  - INSOMNIA [None]
